FAERS Safety Report 8610487 (Version 3)
Quarter: 2012Q4

REPORT INFORMATION
  Report Type: 
  Country: US (occurrence: US)
  Receive Date: 20120612
  Receipt Date: 20121112
  Transmission Date: 20130627
  Serious: No
  Sender: FDA-Public Use
  Company Number: US-ASTRAZENECA-2010SE22198

PATIENT
  Age: 51 Year
  Sex: Female

DRUGS (5)
  1. SEROQUEL [Suspect]
     Route: 048
  2. SEROQUEL [Suspect]
     Route: 048
  3. SEROQUEL [Suspect]
     Route: 048
  4. SEROQUEL [Suspect]
     Route: 048
  5. SEROQUEL [Suspect]
     Route: 048

REACTIONS (22)
  - Drug intolerance [Unknown]
  - Chest pain [Unknown]
  - Bruxism [Unknown]
  - Abnormal behaviour [Unknown]
  - Negative thoughts [Unknown]
  - Insomnia [Unknown]
  - Sleep terror [Unknown]
  - Malaise [Unknown]
  - Drug withdrawal syndrome [Unknown]
  - Fatigue [Unknown]
  - Blood cholesterol increased [Unknown]
  - Hypersensitivity [Unknown]
  - Lethargy [Unknown]
  - Muscle spasms [Unknown]
  - Weight increased [Unknown]
  - Nightmare [Unknown]
  - Dizziness [Unknown]
  - Adverse drug reaction [Unknown]
  - Drug ineffective [Unknown]
  - Intentional drug misuse [Unknown]
  - Intentional drug misuse [Unknown]
  - Drug dose omission [Unknown]
